FAERS Safety Report 12981996 (Version 1)
Quarter: 2016Q4

REPORT INFORMATION
  Report Type: Not Available
  Country: FI (occurrence: FI)
  Receive Date: 20161129
  Receipt Date: 20161129
  Transmission Date: 20170207
  Serious: Yes (Hospitalization, Other)
  Sender: FDA-Public Use
  Company Number: FI-MUNDIPHARMA DS AND PHARMACOVIGILANCE-GBR-2016-0041936

PATIENT
  Age: 75 Year
  Sex: Male

DRUGS (21)
  1. MAREVAN [Concomitant]
     Active Substance: WARFARIN SODIUM
     Dosage: MONDAY, TUESDAY, WEDNESDAY, FRIDAY AND SATURDAY 1/2 TABL PER A DAY AND THURSDAY AND SUNDAY ONE TABLE
     Dates: start: 20141231, end: 20150107
  2. OXANEST [Concomitant]
     Active Substance: OXYCODONE HYDROCHLORIDE
     Dosage: 4-6 MG IF NEEDED
     Dates: start: 20141231, end: 20150107
  3. OCTAPLEX                           /01275601/ [Concomitant]
     Dosage: 1 AMPULE, PRN
     Dates: start: 20141231, end: 20150107
  4. AVODART [Concomitant]
     Active Substance: DUTASTERIDE
     Dosage: 0.5 MG, DAILY
     Dates: start: 20141231, end: 20150107
  5. ORLOC [Concomitant]
     Active Substance: BISOPROLOL FUMARATE
     Dosage: 5 MG, DAILY
     Dates: start: 20141231, end: 20150107
  6. KONAKION [Concomitant]
     Active Substance: PHYTONADIONE
     Dosage: 5 MG, PRN
     Dates: start: 20141231, end: 20150107
  7. DOTAREM [Concomitant]
     Active Substance: GADOTERATE MEGLUMINE
     Dosage: UNK
     Dates: start: 20141231, end: 20150107
  8. TRAMAL [Concomitant]
     Active Substance: TRAMADOL
  9. OXYNORM [Suspect]
     Active Substance: OXYCODONE HYDROCHLORIDE
     Indication: PRODUCT USED FOR UNKNOWN INDICATION
     Dosage: 5 MG, PRN
     Route: 048
  10. ATORVASTATIN [Concomitant]
     Active Substance: ATORVASTATIN
     Dosage: 10 MG, DAILY
     Dates: start: 20141231, end: 20150107
  11. CEFUROXIME ORION [Concomitant]
     Dosage: 1.5 G, TID
     Dates: start: 20141231, end: 20150107
  12. NEURAMIN                           /00056102/ [Concomitant]
     Dosage: 250 MG, DAILY
     Dates: start: 20141231, end: 20150107
  13. OXYNORM [Suspect]
     Active Substance: OXYCODONE HYDROCHLORIDE
     Indication: PRODUCT USED FOR UNKNOWN INDICATION
     Dosage: 5 MG, PRN
     Route: 048
     Dates: start: 20150101, end: 20150107
  14. TARGINIQ ER [Suspect]
     Active Substance: NALOXONE HYDROCHLORIDE\OXYCODONE HYDROCHLORIDE
     Indication: PRODUCT USED FOR UNKNOWN INDICATION
     Dosage: 2 TABLET (STRENGTH 10/5 MG), DAILY
     Route: 048
     Dates: start: 20141231, end: 20150101
  15. PANACOD [Suspect]
     Active Substance: ACETAMINOPHEN\CODEINE PHOSPHATE
     Indication: PRODUCT USED FOR UNKNOWN INDICATION
     Dosage: 500/30MG, 1 TABLET THREE TIMES A DAY, IF NEEDED MAXIMAL DOSAGE 3 TABLETS/DAY
     Route: 065
     Dates: start: 20141231, end: 20150107
  16. FENTANYL. [Concomitant]
     Active Substance: FENTANYL
     Dosage: UNK
     Dates: start: 20141230
  17. TAVANIC [Concomitant]
     Active Substance: LEVOFLOXACIN
     Dosage: 500 MG, DAILY
     Dates: start: 20141231, end: 20150107
  18. MERONEM [Concomitant]
     Active Substance: MEROPENEM
     Dosage: 1 G, TID
     Dates: start: 20141231, end: 20150107
  19. KLEXANE [Concomitant]
     Active Substance: ENOXAPARIN
     Dosage: 40 MG, DAILY
     Dates: start: 20141231, end: 20150107
  20. PANADOL                            /00020001/ [Concomitant]
     Dosage: 1 TABLET, TID
     Dates: start: 20141231, end: 20150107
  21. OMNIPAQUE [Concomitant]
     Active Substance: IOHEXOL
     Dosage: UNK
     Dates: start: 20141231, end: 20150107

REACTIONS (3)
  - Loss of consciousness [Unknown]
  - Delirium [Unknown]
  - Pneumonia [Unknown]

NARRATIVE: CASE EVENT DATE: 20141231
